FAERS Safety Report 21211067 (Version 1)
Quarter: 2022Q3

REPORT INFORMATION
  Report Type: Spontaneous
  Country: US (occurrence: US)
  Receive Date: 20220815
  Receipt Date: 20220815
  Transmission Date: 20221026
  Serious: No
  Sender: FDA-Public Use
  Company Number: US-SA-SAC20220809000212

PATIENT
  Sex: Female

DRUGS (2)
  1. DUPIXENT [Suspect]
     Active Substance: DUPILUMAB
     Indication: Dermatitis atopic
     Dosage: 300 MG, QOW
     Route: 058
  2. XHANCE [Concomitant]
     Active Substance: FLUTICASONE PROPIONATE

REACTIONS (6)
  - Vision blurred [Unknown]
  - Condition aggravated [Unknown]
  - Sense of oppression [Unknown]
  - Condition aggravated [Unknown]
  - Dry eye [Unknown]
  - Therapeutic product effective for unapproved indication [Unknown]
